FAERS Safety Report 9981752 (Version 1)
Quarter: 2014Q1

REPORT INFORMATION
  Report Type: Spontaneous
  Country: US (occurrence: None)
  Receive Date: 20140127
  Receipt Date: 20140127
  Transmission Date: 20141002
  Serious: Yes (Hospitalization)
  Sender: FDA-Public Use
  Company Number: 1192934

PATIENT
  Sex: 0

DRUGS (3)
  1. RITUXAN [Suspect]
     Indication: AUTOIMMUNE DISORDER
  2. METOPROLOL (METOPROLOL TARTRATE) [Concomitant]
  3. TORSEMIDE (TORASEMIDE) [Concomitant]

REACTIONS (1)
  - Pruritus [None]
